FAERS Safety Report 7391308-9 (Version None)
Quarter: 2011Q2

REPORT INFORMATION
  Report Type: 
  Country: None (occurrence: None)
  Receive Date: 20110404
  Receipt Date: 20110330
  Transmission Date: 20111010
  Serious: Yes (Other)
  Sender: FDA-Public Use
  Company Number: US-AMGEN-USASP2011016914

PATIENT
  Age: 33 Year
  Sex: Female

DRUGS (2)
  1. NPLATE [Suspect]
     Indication: IDIOPATHIC THROMBOCYTOPENIC PURPURA
     Dates: start: 20110322, end: 20110329
  2. CORTICOSTEROIDS [Concomitant]

REACTIONS (2)
  - APLASTIC ANAEMIA [None]
  - DRUG INEFFECTIVE [None]
